FAERS Safety Report 15195132 (Version 2)
Quarter: 2018Q3

REPORT INFORMATION
  Report Type: Spontaneous
  Country: DE (occurrence: DE)
  Receive Date: 20180725
  Receipt Date: 20180802
  Transmission Date: 20181010
  Serious: Yes (Hospitalization, Other)
  Sender: FDA-Public Use
  Company Number: DE-PFIZER INC-2018131364

PATIENT
  Age: 34 Year
  Sex: Female
  Weight: 79.4 kg

DRUGS (7)
  1. RISPERIDON [Concomitant]
     Active Substance: RISPERIDONE
     Dosage: 4 MG, 2X/DAY
  2. DEPO?CLINOVIR [Suspect]
     Active Substance: MEDROXYPROGESTERONE ACETATE
     Indication: MENORRHAGIA
  3. QUETIAPIN [Concomitant]
     Active Substance: QUETIAPINE
     Dosage: 25, 1X/DAY
  4. TAXILAN /00162501/ [Concomitant]
     Active Substance: PERAZINE
     Dosage: 1?1?0?3
  5. DEPO?CLINOVIR [Suspect]
     Active Substance: MEDROXYPROGESTERONE ACETATE
     Indication: CONTRACEPTION
     Dosage: 1 DF, EVERY 3 MONTHS
     Route: 030
     Dates: start: 1999
  6. METFORMIN [Concomitant]
     Active Substance: METFORMIN HYDROCHLORIDE
     Indication: TYPE 2 DIABETES MELLITUS
     Dosage: 500 MG, 1X/DAY
  7. METOPROLOL. [Concomitant]
     Active Substance: METOPROLOL
     Indication: HYPERTENSION
     Dosage: 47.5, 1X/DAY

REACTIONS (4)
  - Deep vein thrombosis [Recovered/Resolved]
  - Diabetes mellitus [Unknown]
  - Oesophageal ulcer [Unknown]
  - Hepatic steatosis [Unknown]

NARRATIVE: CASE EVENT DATE: 20180111
